FAERS Safety Report 11841651 (Version 1)
Quarter: 2015Q4

REPORT INFORMATION
  Report Type: Spontaneous
  Country: US (occurrence: US)
  Receive Date: 20151216
  Receipt Date: 20151216
  Transmission Date: 20160305
  Serious: Yes (Death)
  Sender: FDA-Public Use
  Company Number: US-BAYER-2015-485547

PATIENT
  Age: 49 Year
  Sex: Female

DRUGS (3)
  1. TEMAZEPAM. [Suspect]
     Active Substance: TEMAZEPAM
  2. IBUPROFEN. [Suspect]
     Active Substance: IBUPROFEN
  3. ACETYLSALICYLIC ACID (} 100 MG) [Suspect]
     Active Substance: ASPIRIN
     Route: 048

REACTIONS (2)
  - Intentional overdose [Fatal]
  - Toxicity to various agents [Fatal]
